FAERS Safety Report 5942715-X (Version None)
Quarter: 2008Q4

REPORT INFORMATION
  Report Type: 
  Country: None (occurrence: None)
  Receive Date: 20081106
  Receipt Date: 20081028
  Transmission Date: 20090506
  Serious: Yes (Hospitalization)
  Sender: FDA-Public Use
  Company Number: US-BAYER-US-2006-006391

PATIENT
  Age: 76 Year
  Sex: Male
  Weight: 68 kg

DRUGS (64)
  1. CAMPATH [Suspect]
     Indication: CHRONIC LYMPHOCYTIC LEUKAEMIA
     Dosage: UNIT DOSE: 30 MG
     Route: 058
     Dates: start: 20060313, end: 20060317
  2. CAMPATH [Suspect]
     Dosage: UNIT DOSE: 30 MG
     Route: 058
     Dates: start: 20060501, end: 20060505
  3. CAMPATH [Suspect]
     Dosage: UNIT DOSE: 30 MG
     Route: 058
     Dates: start: 20060605, end: 20060605
  4. CAMPATH [Suspect]
     Dosage: UNIT DOSE: 30 MG
     Route: 058
     Dates: start: 20060530, end: 20060602
  5. FLUDARA [Suspect]
     Indication: CHRONIC LYMPHOCYTIC LEUKAEMIA
     Dosage: UNIT DOSE: 20 MG/M2
     Route: 042
     Dates: start: 20060530, end: 20060602
  6. FLUDARA [Suspect]
     Dosage: UNIT DOSE: 20 MG/M2
     Route: 042
     Dates: start: 20060605, end: 20060605
  7. FLUDARA [Suspect]
     Dosage: UNIT DOSE: 20 MG/M2
     Route: 042
     Dates: start: 20060313, end: 20060317
  8. FLUDARA [Suspect]
     Dosage: UNIT DOSE: 20 MG/M2
     Route: 042
     Dates: start: 20060501, end: 20060505
  9. BACTRIM [Concomitant]
     Indication: ANTIBIOTIC PROPHYLAXIS
     Route: 048
     Dates: start: 20060411, end: 20060426
  10. BACTRIM [Concomitant]
     Route: 048
     Dates: start: 20060217, end: 20060411
  11. BACTRIM [Concomitant]
     Route: 048
     Dates: start: 20060426
  12. ALBUTEROL [Concomitant]
     Indication: DYSPNOEA
     Route: 055
     Dates: start: 20060321, end: 20060321
  13. PREDNISONE TAB [Concomitant]
     Indication: AUTOIMMUNE THROMBOCYTOPENIA
     Route: 048
     Dates: start: 20060429, end: 20060430
  14. PREDNISONE TAB [Concomitant]
     Route: 048
     Dates: start: 20060511
  15. PREDNISONE TAB [Concomitant]
     Route: 048
     Dates: start: 20060505, end: 20060506
  16. PREDNISONE TAB [Concomitant]
     Route: 048
     Dates: start: 20060501, end: 20060502
  17. PREDNISONE TAB [Concomitant]
     Route: 048
     Dates: start: 20060427, end: 20060428
  18. PREDNISONE TAB [Concomitant]
     Dosage: UNIT DOSE: 40 MG
     Route: 048
     Dates: start: 20060217, end: 20060322
  19. PREDNISONE TAB [Concomitant]
     Route: 048
     Dates: start: 20060323
  20. PREDNISONE TAB [Concomitant]
     Route: 048
     Dates: start: 20060503, end: 20060504
  21. ACYCLOVIR [Concomitant]
     Indication: FEBRILE NEUTROPENIA
     Route: 042
     Dates: start: 20060228, end: 20060310
  22. ALLOPURINOL [Concomitant]
     Indication: HYPERURICAEMIA
     Dosage: UNIT DOSE: 100 MG
     Route: 048
     Dates: start: 20060114
  23. DOCUSATE CALCIUM [Concomitant]
     Indication: CONSTIPATION
     Dosage: UNIT DOSE: 240 MG
     Route: 048
     Dates: start: 20051105
  24. FERROUS SULFATE [Concomitant]
     Indication: ANAEMIA
     Dosage: UNIT DOSE: 325 MG
     Route: 048
     Dates: start: 20051101
  25. FLUCONAZOLE [Concomitant]
     Indication: ANTIFUNGAL PROPHYLAXIS
     Dosage: UNIT DOSE: 200 MG
     Route: 048
     Dates: start: 20060228, end: 20060308
  26. FOLIC ACID [Concomitant]
     Indication: VITAMIN SUPPLEMENTATION
     Dosage: UNIT DOSE: 1 MG
     Route: 048
     Dates: start: 20051001
  27. MULTI-VITAMINS [Concomitant]
     Indication: VITAMIN SUPPLEMENTATION
     Route: 048
     Dates: start: 20051001
  28. TERAZOSIN HYDROCHLORIDE [Concomitant]
     Indication: BENIGN PROSTATIC HYPERPLASIA
     Dosage: UNIT DOSE: 4 MG
     Route: 048
     Dates: start: 20050401
  29. CIPROFLOXACIN [Concomitant]
     Indication: ANTIBIOTIC PROPHYLAXIS
     Dosage: UNIT DOSE: 400 MG
     Route: 042
     Dates: start: 20060228, end: 20060310
  30. IMIPENEM [Concomitant]
     Indication: ANTIBIOTIC PROPHYLAXIS
     Dosage: UNIT DOSE: 500 MG
     Route: 042
     Dates: start: 20060228, end: 20060310
  31. OXYCODONE W/PARACETAMOL [Concomitant]
     Indication: BACK PAIN
     Route: 048
     Dates: start: 20051202, end: 20060310
  32. FINASTERIDE [Concomitant]
     Indication: BENIGN PROSTATIC HYPERPLASIA
     Dosage: UNIT DOSE: 5 MG
     Route: 048
     Dates: start: 20060310, end: 20060411
  33. EPOETIN ALFA [Concomitant]
     Indication: ANAEMIA
     Route: 058
     Dates: start: 20060116
  34. NEUPOGEN [Concomitant]
     Indication: NEUTROPENIA
     Route: 058
     Dates: start: 20060414, end: 20060425
  35. NEUPOGEN [Concomitant]
     Dosage: UNIT DOSE: 300 ?G
     Route: 058
     Dates: start: 20060320, end: 20060414
  36. FAMCICLOVIR [Concomitant]
     Indication: INFECTION PROPHYLAXIS
     Dosage: UNIT DOSE: 250 MG
     Route: 048
     Dates: start: 20060426
  37. FAMCICLOVIR [Concomitant]
     Dosage: UNIT DOSE: 250 MG
     Route: 048
     Dates: start: 20060310, end: 20060411
  38. ACETAMINOPHEN [Concomitant]
     Indication: PREMEDICATION
     Route: 048
     Dates: start: 20060313, end: 20060317
  39. DIPHENHYDRAMINE HCL [Concomitant]
     Indication: PREMEDICATION
     Route: 048
     Dates: start: 20060313, end: 20060317
  40. SENNA [Concomitant]
     Indication: CONSTIPATION
     Dosage: UNIT DOSE: 8.6 MG
     Route: 048
     Dates: start: 20051115, end: 20060302
  41. ACETAMINOPHEN [Concomitant]
     Dosage: UNIT DOSE: 650 MG
     Route: 048
     Dates: start: 20060412, end: 20060412
  42. FUROSEMIDE [Concomitant]
     Indication: OEDEMA PERIPHERAL
     Dosage: UNIT DOSE: 20 MG
     Route: 042
     Dates: start: 20060412, end: 20060412
  43. FUROSEMIDE [Concomitant]
     Dosage: UNIT DOSE: 40 MG
     Route: 042
     Dates: start: 20060413, end: 20060413
  44. LACTULOSE [Concomitant]
     Indication: CONSTIPATION
     Route: 048
     Dates: start: 20060424, end: 20060424
  45. VALACYCLOVIR HCL [Concomitant]
     Indication: ANTIBIOTIC PROPHYLAXIS
     Dosage: UNIT DOSE: 500 MG
     Route: 048
     Dates: start: 20060411, end: 20060426
  46. AZTREONAM [Concomitant]
     Indication: ESCHERICHIA BACTERAEMIA
     Dosage: UNIT DOSE: 2 G
     Route: 042
     Dates: start: 20060413
  47. OXYCODONE HCL [Concomitant]
     Indication: BACK PAIN
     Dosage: UNIT DOSE: 10 MG
     Route: 048
     Dates: start: 20060418, end: 20060426
  48. OXYCODONE HCL [Concomitant]
     Dosage: UNIT DOSE: 5 MG
     Route: 048
     Dates: start: 20060414, end: 20060418
  49. CASPOFUNGIN [Concomitant]
     Indication: ANTIFUNGAL PROPHYLAXIS
     Route: 042
     Dates: start: 20060414
  50. CASPOFUNGIN [Concomitant]
     Dosage: UNIT DOSE: 70 MG
     Route: 042
     Dates: start: 20060414, end: 20060414
  51. VANCOMYCIN [Concomitant]
     Indication: PROPHYLAXIS
     Route: 042
     Dates: start: 20060416, end: 20060421
  52. FLUCONAZOLE [Concomitant]
     Route: 048
     Dates: start: 20060120, end: 20060411
  53. AVELOX [Concomitant]
     Indication: BACTERAEMIA
     Route: 042
     Dates: start: 20060411, end: 20060413
  54. AVELOX [Concomitant]
     Route: 048
     Dates: start: 20060410, end: 20060411
  55. HEPARIN [Concomitant]
     Indication: THROMBOSIS PROPHYLAXIS
     Route: 058
     Dates: start: 20060411
  56. IMMUNE GLOBULIN (HUMAN) [Concomitant]
     Indication: FEBRILE NEUTROPENIA
     Dosage: UNIT DOSE: 50 MG
     Route: 042
     Dates: start: 20060412, end: 20060412
  57. HYDROCORTISONE [Concomitant]
     Indication: PREMEDICATION
     Dosage: UNIT DOSE: 100 MG
     Route: 042
     Dates: start: 20060412, end: 20060412
  58. DIPHENHYDRAMINE HCL [Concomitant]
     Dosage: UNIT DOSE: 25 MG
     Route: 048
     Dates: start: 20060412, end: 20060412
  59. LACTULOSE [Concomitant]
     Route: 048
     Dates: start: 20060413, end: 20060414
  60. ACETAMINOPHEN AND OXYCODONE HCL [Concomitant]
     Indication: BACK PAIN
     Route: 048
     Dates: start: 20060403, end: 20060414
  61. FLUCONAZOLE [Concomitant]
     Route: 048
     Dates: start: 20060411, end: 20060414
  62. GENTAMICIN [Concomitant]
     Indication: BACTERAEMIA
     Route: 042
     Dates: start: 20060414, end: 20060420
  63. OXYCODONE HCL [Concomitant]
     Route: 048
     Dates: start: 20060418, end: 20060426
  64. LACTULOSE [Concomitant]
     Route: 048
     Dates: start: 20060404, end: 20060404

REACTIONS (1)
  - HYPERKALAEMIA [None]
